FAERS Safety Report 6522344-X (Version None)
Quarter: 2009Q4

REPORT INFORMATION
  Report Type: 
  Country: None (occurrence: None)
  Receive Date: 20091230
  Receipt Date: 20091216
  Transmission Date: 20100525
  Serious: Yes (Other)
  Sender: FDA-Public Use
  Company Number: B0621661A

PATIENT
  Sex: Female

DRUGS (2)
  1. COMBIVIR [Suspect]
     Indication: ASYMPTOMATIC HIV INFECTION
     Dosage: 2TAB PER DAY
     Dates: start: 20090526, end: 20091104
  2. KALETRA [Suspect]
     Indication: ASYMPTOMATIC HIV INFECTION
     Dosage: 4TAB PER DAY
     Dates: start: 20090526, end: 20091104

REACTIONS (4)
  - CARDIOMYOPATHY NEONATAL [None]
  - CONGENITAL AORTIC STENOSIS [None]
  - DRUG EXPOSURE DURING PREGNANCY [None]
  - PREMATURE BABY [None]
